FAERS Safety Report 12965287 (Version 4)
Quarter: 2017Q1

REPORT INFORMATION
  Report Type: Spontaneous
  Country: US (occurrence: US)
  Receive Date: 20161122
  Receipt Date: 20170208
  Transmission Date: 20170428
  Serious: Yes (Disabling, Other)
  Sender: FDA-Public Use
  Company Number: US-SAOL THERAPEUTICS-2016SAO01085

PATIENT
  Age: 64 Year
  Sex: Male

DRUGS (1)
  1. BACLOFEN. [Suspect]
     Active Substance: BACLOFEN
     Dosage: UNK
     Route: 037
     Dates: end: 20120105

REACTIONS (11)
  - Intervertebral disc protrusion [Unknown]
  - Granuloma [Unknown]
  - Device battery issue [Recovered/Resolved]
  - Spinal cord injury [Unknown]
  - Staphylococcal infection [Unknown]
  - Unevaluable event [Recovering/Resolving]
  - Sepsis [Recovered/Resolved]
  - Impaired healing [Not Recovered/Not Resolved]
  - Implant site infection [Unknown]
  - Paraplegia [Unknown]
  - Muscle spasms [Not Recovered/Not Resolved]

NARRATIVE: CASE EVENT DATE: 2005
